FAERS Safety Report 13062195 (Version 2)
Quarter: 2017Q1

REPORT INFORMATION
  Report Type: Spontaneous
  Country: US (occurrence: US)
  Receive Date: 20161226
  Receipt Date: 20170106
  Transmission Date: 20170428
  Serious: No
  Sender: FDA-Public Use
  Company Number: US-009507513-1612USA011993

PATIENT
  Sex: Male

DRUGS (1)
  1. PRINIVIL [Suspect]
     Active Substance: LISINOPRIL

REACTIONS (2)
  - Drug hypersensitivity [Unknown]
  - Swelling [Unknown]
